FAERS Safety Report 21615183 (Version 1)
Quarter: 2022Q4

REPORT INFORMATION
  Report Type: Other
  Country: AU (occurrence: None)
  Receive Date: 20221118
  Receipt Date: 20221118
  Transmission Date: 20230113
  Serious: Yes (Hospitalization, Other)
  Sender: FDA-Public Use
  Company Number: AU-Navinta LLC-000302

PATIENT
  Age: 48 Year
  Sex: Male

DRUGS (2)
  1. BENZTROPINE [Suspect]
     Active Substance: BENZTROPINE
     Indication: Product used for unknown indication
     Dosage: 2MG BENZTROPINE IN 1MG ALIQUOTS TO MINIMAL AVAIL
  2. OLANZAPINE [Suspect]
     Active Substance: OLANZAPINE
     Indication: Product used for unknown indication
     Dosage: FIRST DEPOT INTRAMUSCULAR INJECTION OF 210MG OLANZAPINE
     Route: 030

REACTIONS (7)
  - Anticholinergic syndrome [Recovered/Resolved]
  - Disease progression [Recovered/Resolved]
  - Delirium [Recovered/Resolved]
  - Sinus tachycardia [Recovered/Resolved]
  - Urinary retention [Recovered/Resolved]
  - Rhabdomyolysis [Recovered/Resolved]
  - Acute kidney injury [Recovered/Resolved]
